FAERS Safety Report 8978478 (Version 7)
Quarter: 2014Q2

REPORT INFORMATION
  Report Type: Report from Study
  Country: AU (occurrence: AU)
  Receive Date: 20121220
  Receipt Date: 20140609
  Transmission Date: 20141212
  Serious: Yes (Other)
  Sender: FDA-Public Use
  Company Number: PHHY2012AU114010

PATIENT
  Age: 50 Year
  Sex: Male

DRUGS (7)
  1. SANDOSTATIN LAR [Suspect]
     Indication: CARCINOID SYNDROME
     Dosage: 40 MG, UNK
     Route: 030
     Dates: start: 20120926
  2. SANDOSTATIN LAR [Suspect]
     Dosage: 60 MG, UNK
     Route: 030
  3. SANDOSTATIN LAR [Suspect]
     Dosage: 30 MG, UNK
     Route: 030
  4. SANDOSTATIN LAR [Suspect]
     Dosage: 60 MG, UNK
     Route: 030
     Dates: start: 20130727
  5. SANDOSTATIN LAR [Suspect]
     Dosage: 40 MG, UNK
     Route: 030
  6. SANDOSTATIN LAR [Suspect]
     Dosage: 40 MG, UNK
     Route: 030
  7. LUTETIUM (LU 177) [Concomitant]
     Dosage: UNK UKN, UNK

REACTIONS (16)
  - Bone neoplasm [Unknown]
  - Bone lesion [Unknown]
  - Hypoaesthesia [Not Recovered/Not Resolved]
  - Paraesthesia [Not Recovered/Not Resolved]
  - Paraganglion neoplasm [Not Recovered/Not Resolved]
  - Gastrooesophageal reflux disease [Not Recovered/Not Resolved]
  - Abdominal distension [Not Recovered/Not Resolved]
  - Rash erythematous [Not Recovered/Not Resolved]
  - Groin pain [Recovered/Resolved]
  - Temperature intolerance [Unknown]
  - Abdominal pain [Recovered/Resolved]
  - Diarrhoea [Unknown]
  - Flatulence [Not Recovered/Not Resolved]
  - Malaise [Unknown]
  - Constipation [Not Recovered/Not Resolved]
  - Nausea [Not Recovered/Not Resolved]
